FAERS Safety Report 20527017 (Version 1)
Quarter: 2022Q1

REPORT INFORMATION
  Report Type: Report from Study
  Country: US (occurrence: US)
  Receive Date: 20220228
  Receipt Date: 20220228
  Transmission Date: 20220423
  Serious: Yes (Hospitalization)
  Sender: FDA-Public Use
  Company Number: US-ABBVIE-22K-163-4294263-00

PATIENT
  Age: 58 Year
  Sex: Male

DRUGS (3)
  1. DUOPA [Suspect]
     Active Substance: CARBIDOPA\LEVODOPA
     Indication: Product used for unknown indication
     Dosage: MORNING DOSE: 3 ML, CONTINUOUS DOSE:4 ML, EXTRA DOSE: 2 ML.
     Route: 050
     Dates: start: 20210224, end: 20220221
  2. DUOPA [Suspect]
     Active Substance: CARBIDOPA\LEVODOPA
  3. CARBIDOPA\LEVODOPA [Concomitant]
     Active Substance: CARBIDOPA\LEVODOPA
     Indication: Parkinson^s disease

REACTIONS (4)
  - Parkinson^s disease [Recovering/Resolving]
  - General physical health deterioration [Unknown]
  - Device occlusion [Unknown]
  - Off label use [Unknown]

NARRATIVE: CASE EVENT DATE: 20220201
